FAERS Safety Report 4839027-4 (Version None)
Quarter: 2005Q4

REPORT INFORMATION
  Report Type: 
  Country: None (occurrence: None)
  Receive Date: 20051129
  Receipt Date: 20051102
  Transmission Date: 20060501
  Serious: Yes (Life-Threatening)
  Sender: FDA-Public Use
  Company Number: US-BRISTOL-MYERS SQUIBB COMPANY-13167200

PATIENT
  Age: 66 Year
  Sex: Male

DRUGS (5)
  1. ERBITUX [Suspect]
     Indication: COLON CANCER
     Dosage: LOADING DOSE.
     Route: 042
     Dates: start: 20051102, end: 20051102
  2. ALOXI [Concomitant]
     Dates: start: 20051102
  3. BENADRYL [Concomitant]
     Dates: start: 20051102
  4. DECADRON [Concomitant]
     Dates: start: 20051102
  5. TAGAMET [Concomitant]
     Dates: start: 20051102

REACTIONS (6)
  - BLISTER [None]
  - CHEST DISCOMFORT [None]
  - DYSPNOEA [None]
  - ERYTHEMA [None]
  - SNEEZING [None]
  - URTICARIA GENERALISED [None]
